FAERS Safety Report 8847504 (Version 2)
Quarter: 2012Q4

REPORT INFORMATION
  Report Type: 
  Country: US (occurrence: US)
  Receive Date: 20121018
  Receipt Date: 20121031
  Transmission Date: 20130627
  Serious: Yes (Death)
  Sender: FDA-Public Use
  Company Number: CHPA2012US019978

PATIENT
  Age: 80 Year
  Sex: Female

DRUGS (1)
  1. MAALOX ANTACID/ANTIGAS MS LIQ COOL MINT [Suspect]
     Indication: ABDOMINAL DISCOMFORT
     Dosage: A COUPLE TABLESPOONS, QD
     Route: 048
     Dates: start: 201208, end: 20120916

REACTIONS (4)
  - Myocardial infarction [Fatal]
  - Abdominal pain upper [Not Recovered/Not Resolved]
  - Drug ineffective [Unknown]
  - Incorrect drug administration duration [Unknown]
